FAERS Safety Report 8951176 (Version 1)
Quarter: 2012Q4

REPORT INFORMATION
  Report Type: Report from Study
  Country: TH (occurrence: TH)
  Receive Date: 20121207
  Receipt Date: 20121207
  Transmission Date: 20130627
  Serious: Yes (Hospitalization)
  Sender: FDA-Public Use
  Company Number: TH-SANOFI-AVENTIS-2012SA088158

PATIENT
  Age: 52 Year
  Sex: Female
  Weight: 51 kg

DRUGS (12)
  1. DOCETAXEL [Suspect]
     Indication: HER-2 POSITIVE BREAST CANCER
     Dosage: dose: 75 mg/m2
form: vial
     Route: 042
     Dates: start: 20090825
  2. DOCETAXEL [Suspect]
     Indication: HER-2 POSITIVE BREAST CANCER
     Dosage: dose: 60 mg/m2
     Route: 042
     Dates: start: 20090914
  3. DOCETAXEL [Suspect]
     Indication: HER-2 POSITIVE BREAST CANCER
     Dosage: form:vial
     Route: 042
     Dates: start: 20091005
  4. DOCETAXEL [Suspect]
     Indication: HER-2 POSITIVE BREAST CANCER
     Dosage: dose: 75 mg/m2
form: vial
     Route: 042
     Dates: start: 20090825
  5. TRASTUZUMAB [Suspect]
     Indication: HER-2 POSITIVE BREAST CANCER
     Route: 042
     Dates: start: 20090825
  6. TRASTUZUMAB [Suspect]
     Indication: HER-2 POSITIVE BREAST CANCER
     Route: 042
     Dates: start: 20090825
  7. BEVACIZUMAB [Suspect]
     Indication: HER-2 POSITIVE BREAST CANCER
     Dosage: dose: 15 mg/kg
     Route: 042
     Dates: start: 20090825
  8. BEVACIZUMAB [Suspect]
     Indication: HER-2 POSITIVE BREAST CANCER
     Dosage: dose: 15 mg/kg
     Route: 042
     Dates: start: 20090825
  9. CARBOPLATIN [Suspect]
     Indication: HER-2 POSITIVE BREAST CANCER
     Dosage: dose: 6AUC
form: vial
     Route: 042
     Dates: start: 20090825
  10. CARBOPLATIN [Suspect]
     Indication: HER-2 POSITIVE BREAST CANCER
     Dosage: dose: 5 AUC
form: vial
     Route: 042
     Dates: start: 20090914
  11. CARBOPLATIN [Suspect]
     Indication: HER-2 POSITIVE BREAST CANCER
     Dosage: form: vial
dose: 4 AUC
     Route: 042
     Dates: start: 20091005
  12. LORAZEPAM [Concomitant]
     Dates: start: 20090904, end: 20090907

REACTIONS (2)
  - Hypokalaemia [Recovered/Resolved]
  - Diarrhoea [Recovered/Resolved]
